FAERS Safety Report 4282677-7 (Version None)
Quarter: 2004Q1

REPORT INFORMATION
  Report Type: 
  Country: None (occurrence: None)
  Receive Date: 20040130
  Receipt Date: 20030210
  Transmission Date: 20041129
  Serious: No
  Sender: FDA-Public Use
  Company Number: US-BRISTOL-MYERS SQUIBB COMPANY-12182580

PATIENT
  Age: 44 Year
  Sex: Female
  Weight: 74 kg

DRUGS (5)
  1. SERZONE [Suspect]
     Indication: DEPRESSION
     Route: 048
     Dates: start: 20030205, end: 20030205
  2. SERZONE [Suspect]
     Indication: PANIC ATTACK
     Route: 048
     Dates: start: 20030205, end: 20030205
  3. PENICILLIN [Concomitant]
  4. WELLBUTRIN [Concomitant]
  5. DETROL [Concomitant]

REACTIONS (13)
  - ABDOMINAL DISTENSION [None]
  - ANXIETY [None]
  - CHEST PAIN [None]
  - DIZZINESS [None]
  - DYSURIA [None]
  - FEELING ABNORMAL [None]
  - FLATULENCE [None]
  - NAUSEA [None]
  - OEDEMA PERIPHERAL [None]
  - PAIN IN EXTREMITY [None]
  - PARAESTHESIA [None]
  - VAGINAL BURNING SENSATION [None]
  - VISION BLURRED [None]
